FAERS Safety Report 8984773 (Version 1)
Quarter: 2012Q4

REPORT INFORMATION
  Report Type: 
  Country: SA (occurrence: SA)
  Receive Date: 20121225
  Receipt Date: 20121225
  Transmission Date: 20130627
  Serious: Yes (Hospitalization, Other)
  Sender: FDA-Public Use
  Company Number: SA-JNJFOC-20121211258

PATIENT
  Age: 67 Year
  Sex: Female

DRUGS (1)
  1. HALDOL DECANOS [Suspect]
     Indication: AGITATION
     Route: 042
     Dates: start: 20121211, end: 20121211

REACTIONS (2)
  - Incorrect dose administered [Unknown]
  - Incorrect route of drug administration [Unknown]
